FAERS Safety Report 8761225 (Version 1)
Quarter: 2012Q4

REPORT INFORMATION
  Report Type: 
  Country: US (occurrence: US)
  Receive Date: 20120830
  Receipt Date: 20120830
  Transmission Date: 20130627
  Serious: Yes (Other)
  Sender: FDA-Public Use
  Company Number: US-GLAXOSMITHKLINE-A0990983A

PATIENT
  Age: 86 Year
  Sex: Male

DRUGS (11)
  1. LAMICTAL [Suspect]
     Indication: CONVULSION
     Dosage: 100MG Per day
     Route: 048
     Dates: start: 20120809
  2. AMIODARONE [Concomitant]
  3. DILTIAZEM [Concomitant]
  4. FOLIC ACID [Concomitant]
  5. LEVOTHYROXINE [Concomitant]
  6. HCTZ [Concomitant]
  7. ASPIRIN [Concomitant]
  8. PRAVASTATIN [Concomitant]
  9. VITAMIN C [Concomitant]
  10. VITAMIN E [Concomitant]
  11. SENNA [Concomitant]

REACTIONS (6)
  - Aggression [Not Recovered/Not Resolved]
  - Agitation [Unknown]
  - Restlessness [Unknown]
  - Logorrhoea [Unknown]
  - Irritability [Unknown]
  - Back pain [Unknown]
